FAERS Safety Report 8891356 (Version 1)
Quarter: 2012Q4

REPORT INFORMATION
  Report Type: Spontaneous
  Country: US (occurrence: None)
  Receive Date: 20121102
  Receipt Date: 20121102
  Transmission Date: 20130627
  Serious: No
  Sender: FDA-Public Use
  Company Number: None

PATIENT
  Age: 42 Year
  Sex: Female
  Weight: 68.49 kg

DRUGS (1)
  1. LEXAPRO [Suspect]
     Indication: BIPOLAR DISORDER
     Dosage: 20 mg QD PO
     Route: 048
     Dates: start: 201205, end: 201206

REACTIONS (2)
  - Drug effect decreased [None]
  - Product substitution issue [None]
